FAERS Safety Report 4386518-9 (Version None)
Quarter: 2004Q2

REPORT INFORMATION
  Report Type: 
  Country: None (occurrence: None)
  Receive Date: 20040623
  Receipt Date: 20040609
  Transmission Date: 20050107
  Serious: Yes (Death)
  Sender: FDA-Public Use
  Company Number: 8006453

PATIENT
  Sex: Male
  Weight: 181.8 kg

DRUGS (4)
  1. LORTAB [Suspect]
     Dosage: PO
     Route: 048
     Dates: end: 20040101
  2. ACTIQ [Suspect]
     Indication: BACK PAIN
     Dosage: PO
     Route: 048
     Dates: end: 20040101
  3. OXYCONTIN [Suspect]
     Dosage: PPO
     Route: 048
     Dates: end: 20040101
  4. VALIUM [Suspect]
     Dosage: PO
     Route: 048
     Dates: end: 20040101

REACTIONS (2)
  - ACCIDENT [None]
  - DRUG TOXICITY [None]
